FAERS Safety Report 9850011 (Version 1)
Quarter: 2014Q1

REPORT INFORMATION
  Report Type: Spontaneous
  Country: US (occurrence: None)
  Receive Date: 20140124
  Receipt Date: 20140124
  Transmission Date: 20141002
  Serious: Yes (Hospitalization, Other)
  Sender: FDA-Public Use
  Company Number: 2010S1000571

PATIENT
  Age: 53 Year
  Sex: Female
  Weight: 135.17 kg

DRUGS (8)
  1. FLEET PHOSPHO-SODA [Suspect]
     Indication: COLONOSCOPY
     Dosage: ORAL
     Route: 048
     Dates: start: 20071218
  2. BUMEX (BUMETANIDE) (2 MILLIGRAM) [Concomitant]
  3. POTASSIUM (POTASSIUM) [Concomitant]
  4. FERROUS SULFATE (FERROUS SULFATE) [Concomitant]
  5. LIPITOR (ATORVASTATIN CALCIUM) [Concomitant]
  6. DARVOCET (PARACETAMOL, DEXTROPROPOXYPHENE HYDROCHLORIDE) [Concomitant]
  7. IBUPROFEN (IBUPROFEN) [Concomitant]
  8. PREDNISONE (PREDNISONE) [Concomitant]

REACTIONS (9)
  - Malaise [None]
  - Nausea [None]
  - Vomiting [None]
  - Renal failure [None]
  - Decreased appetite [None]
  - Weight decreased [None]
  - Arthralgia [None]
  - Hypoparathyroidism secondary [None]
  - Glomerulonephritis rapidly progressive [None]
